FAERS Safety Report 13885453 (Version 1)
Quarter: 2017Q3

REPORT INFORMATION
  Report Type: Spontaneous
  Country: US (occurrence: US)
  Receive Date: 20170821
  Receipt Date: 20170821
  Transmission Date: 20171127
  Serious: No
  Sender: FDA-Public Use
  Company Number: US-PFIZER INC-2017357124

PATIENT
  Sex: Female

DRUGS (1)
  1. XELJANZ XR [Suspect]
     Active Substance: TOFACITINIB CITRATE
     Dosage: 11 MG, DAILY

REACTIONS (8)
  - Weight increased [Recovering/Resolving]
  - Arthralgia [Not Recovered/Not Resolved]
  - Headache [Unknown]
  - Neuralgia [Unknown]
  - Condition aggravated [Unknown]
  - Myalgia [Unknown]
  - Musculoskeletal discomfort [Unknown]
  - Raynaud^s phenomenon [Not Recovered/Not Resolved]
